FAERS Safety Report 10240710 (Version 3)
Quarter: 2016Q4

REPORT INFORMATION
  Report Type: Spontaneous
  Country: US (occurrence: US)
  Receive Date: 20140617
  Receipt Date: 20161122
  Transmission Date: 20170206
  Serious: Yes (Disabling, Other)
  Sender: FDA-Public Use
  Company Number: US-009507513-1406USA007330

PATIENT
  Sex: Male
  Weight: 89.8 kg

DRUGS (3)
  1. PROPECIA [Suspect]
     Active Substance: FINASTERIDE
     Indication: ALOPECIA
     Dosage: 1 MG, QD
     Route: 048
     Dates: end: 20111229
  2. PROPECIA [Suspect]
     Active Substance: FINASTERIDE
     Dosage: 1 MG, QD
     Route: 048
     Dates: start: 20081006
  3. PROPECIA [Suspect]
     Active Substance: FINASTERIDE
     Dosage: 1 MG, QD
     Route: 048
     Dates: start: 20100412

REACTIONS (20)
  - Reproductive tract disorder [Unknown]
  - Cognitive disorder [Unknown]
  - Middle ear effusion [Unknown]
  - Exposure to communicable disease [Unknown]
  - Erectile dysfunction [Unknown]
  - Upper respiratory tract infection [Unknown]
  - Pityriasis rosea [Unknown]
  - Ear infection [Unknown]
  - Anxiety [Not Recovered/Not Resolved]
  - Sexual dysfunction [Unknown]
  - Ejaculation disorder [Unknown]
  - Eustachian tube disorder [Unknown]
  - Muscle strain [Recovered/Resolved]
  - Tinea pedis [Unknown]
  - Mass [Unknown]
  - Depression [Not Recovered/Not Resolved]
  - Libido decreased [Not Recovered/Not Resolved]
  - Ejaculation failure [Unknown]
  - Melaena [Unknown]
  - Vertigo positional [Unknown]

NARRATIVE: CASE EVENT DATE: 199512
